FAERS Safety Report 8496488-X (Version None)
Quarter: 2012Q2

REPORT INFORMATION
  Report Type: 
  Country: None (occurrence: None)
  Receive Date: 20120629
  Receipt Date: 20120619
  Transmission Date: 20120825
  Serious: Yes (Other)
  Sender: FDA-Public Use
  Company Number: DSJ-2012-03711

PATIENT
  Sex: Female

DRUGS (6)
  1. BENICAR [Suspect]
     Indication: HYPERTENSION
     Dosage: 40 MG (40 MG, 1 IN 1 D), PER ORAL
     Route: 048
  2. BENICAR HCT [Suspect]
     Indication: HYPERTENSION
     Dosage: 20/12.5 MG (1 IN 1 D), PER ORAL
     Route: 048
     Dates: start: 20050101
  3. CLOXAZOLAM (CLOXAZOLAM) (CLOXAZOLAM) [Concomitant]
  4. HYDROXYCHLOROQUINE SULFATE [Suspect]
     Indication: LUPUS VULGARIS
     Dosage: 400 MG, PER ORAL
     Route: 048
     Dates: start: 20100101
  5. CAPTOPRIL [Suspect]
     Indication: HYPERTENSION
     Dosage: PER ORAL
     Route: 048
  6. LEVOTHYROXINE SODIUM [Concomitant]

REACTIONS (14)
  - GASTRITIS EROSIVE [None]
  - CATARACT [None]
  - VOMITING [None]
  - OVERDOSE [None]
  - NAUSEA [None]
  - DRUG INEFFECTIVE [None]
  - COUGH [None]
  - GASTROOESOPHAGEAL REFLUX DISEASE [None]
  - ALOPECIA [None]
  - BLOOD PRESSURE SYSTOLIC INCREASED [None]
  - HYPERMETROPIA [None]
  - MALAISE [None]
  - INFLUENZA [None]
  - LUPUS VULGARIS [None]
